FAERS Safety Report 14524760 (Version 1)
Quarter: 2018Q1

REPORT INFORMATION
  Report Type: Spontaneous
  Country: US (occurrence: US)
  Receive Date: 20180213
  Receipt Date: 20180213
  Transmission Date: 20180509
  Serious: Yes (Other)
  Sender: FDA-Public Use
  Company Number: US-ASTELLAS-2017US050251

PATIENT
  Age: 69 Year
  Sex: Male

DRUGS (2)
  1. AMBISOME [Suspect]
     Active Substance: AMPHOTERICIN B
     Indication: ASPERGILLUS INFECTION
     Route: 042
     Dates: start: 20171031
  2. AMBISOME [Suspect]
     Active Substance: AMPHOTERICIN B
     Indication: SINUSITIS
     Route: 042
     Dates: start: 20171121

REACTIONS (4)
  - Total cholesterol/HDL ratio increased [Unknown]
  - Hyperphosphataemia [Unknown]
  - Cerebrovascular accident [Unknown]
  - Low density lipoprotein increased [Unknown]

NARRATIVE: CASE EVENT DATE: 20171120
